FAERS Safety Report 18125320 (Version 1)
Quarter: 2020Q3

REPORT INFORMATION
  Report Type: Spontaneous
  Country: JP (occurrence: JP)
  Receive Date: 20200807
  Receipt Date: 20200807
  Transmission Date: 20201103
  Serious: Yes (Death, Other)
  Sender: FDA-Public Use
  Company Number: JP-HQ SPECIALTY-JP-2020INT000089

PATIENT

DRUGS (2)
  1. GEMCITABINE. [Suspect]
     Active Substance: GEMCITABINE
     Indication: NON-SMALL CELL LUNG CANCER
     Dosage: 1000 MG/M2, DAYS 1 AND 8, EVERY 3 WEEKS
     Route: 065
  2. CISPLATIN. [Suspect]
     Active Substance: CISPLATIN
     Indication: NON-SMALL CELL LUNG CANCER
     Dosage: 40 MG/M2, DAYS 1 AND 8, EVERY 3 WEEKS
     Route: 065

REACTIONS (2)
  - Pneumonia [Fatal]
  - Neutropenia [Fatal]
